FAERS Safety Report 24671747 (Version 2)
Quarter: 2024Q4

REPORT INFORMATION
  Report Type: Spontaneous
  Country: FR (occurrence: FR)
  Receive Date: 20241127
  Receipt Date: 20241210
  Transmission Date: 20250115
  Serious: Yes (Life-Threatening, Hospitalization, Other)
  Sender: MERCK
  Company Number: None

PATIENT
  Age: 56 Year
  Sex: Male
  Weight: 69 kg

DRUGS (3)
  1. PEMBROLIZUMAB [Suspect]
     Active Substance: PEMBROLIZUMAB
     Indication: Lung adenocarcinoma
     Route: 042
     Dates: start: 20240712, end: 20240823
  2. PEMETREXED [Suspect]
     Active Substance: PEMETREXED
     Indication: Lung adenocarcinoma
     Route: 042
     Dates: start: 20240621, end: 20240802
  3. CARBOPLATIN [Suspect]
     Active Substance: CARBOPLATIN
     Indication: Lung adenocarcinoma
     Dosage: 626 MILLIGRAM
     Route: 042
     Dates: start: 20240621, end: 20240802

REACTIONS (2)
  - Bone marrow failure [Recovered/Resolved]
  - Bronchopneumopathy [Recovered/Resolved]

NARRATIVE: CASE EVENT DATE: 20240806
